FAERS Safety Report 7545170 (Version 11)
Quarter: 2014Q4

REPORT INFORMATION
  Report Type: Spontaneous
  Country: US (occurrence: US)
  Receive Date: 20100806
  Receipt Date: 20141020
  Transmission Date: 20150529
  Serious: Yes (Hospitalization, Other)
  Sender: FDA-Public Use
  Company Number: US-009507513-2010SP014788

PATIENT
  Sex: Female
  Weight: 88.91 kg

DRUGS (1)
  1. NUVARING [Suspect]
     Active Substance: ETHINYL ESTRADIOL\ETONOGESTREL
     Indication: CONTRACEPTION
     Dates: start: 200801, end: 20080305

REACTIONS (21)
  - Transient ischaemic attack [Unknown]
  - Peripheral swelling [Unknown]
  - Epistaxis [Unknown]
  - Pulmonary infarction [Recovered/Resolved]
  - Arthralgia [Unknown]
  - Vision blurred [Unknown]
  - Sleep apnoea syndrome [Unknown]
  - Cardiac murmur [Unknown]
  - Myalgia [Unknown]
  - Supraventricular tachycardia [Recovered/Resolved]
  - Syncope [Unknown]
  - Heart rate increased [Unknown]
  - Pulmonary embolism [Unknown]
  - Weight increased [Unknown]
  - Thrombosis [Recovered/Resolved]
  - Depression [Unknown]
  - Ovarian cyst [Unknown]
  - Dyspnoea [Unknown]
  - Mood swings [Unknown]
  - Hypercoagulation [Unknown]
  - Presyncope [Unknown]

NARRATIVE: CASE EVENT DATE: 2008
